FAERS Safety Report 5307147-6 (Version None)
Quarter: 2007Q2

REPORT INFORMATION
  Report Type: 
  Country: None (occurrence: None)
  Receive Date: 20070420
  Receipt Date: 20070420
  Transmission Date: 20071010
  Serious: Yes (Death)
  Sender: FDA-Public Use
  Company Number: None

PATIENT
  Age: 40 Year
  Sex: Female
  Weight: 83.9154 kg

DRUGS (2)
  1. METHADONE HCL [Suspect]
     Indication: SELF-MEDICATION
     Dosage: DON''T KNOW
     Dates: start: 20070103, end: 20070105
  2. OXYCODONE HCL [Suspect]

REACTIONS (1)
  - DEATH [None]
